FAERS Safety Report 21861836 (Version 1)
Quarter: 2023Q1

REPORT INFORMATION
  Report Type: Spontaneous
  Country: CH (occurrence: CH)
  Receive Date: 20230113
  Receipt Date: 20230113
  Transmission Date: 20230418
  Serious: Yes (Hospitalization)
  Sender: FDA-Public Use
  Company Number: CH-SM-2022-19506

PATIENT
  Age: 88 Year
  Sex: Female

DRUGS (16)
  1. AMLODIPINE [Suspect]
     Active Substance: AMLODIPINE BESYLATE
     Indication: Hypertension
     Dosage: 10 MILLIGRAM DAILY;  SINCE UNKNOWN TIME
     Route: 048
     Dates: end: 20220809
  2. DAFALGAN [Suspect]
     Active Substance: ACETAMINOPHEN
     Indication: Analgesic therapy
     Dosage: IN RESERVE BIS 4G /TAG  ; AS NECESSARY
     Route: 048
     Dates: end: 202207
  3. NOVALGIN (METAMIZOLE SODIUM) [Suspect]
     Active Substance: METAMIZOLE SODIUM
     Indication: Analgesic therapy
     Dosage: UP TO 3X15 DROPS/DAY; AS NECESSARY
     Route: 048
     Dates: end: 20220809
  4. Torasemide mepha [Concomitant]
     Indication: Product used for unknown indication
     Route: 048
  5. PREDNISOLONE [Concomitant]
     Active Substance: PREDNISOLONE
     Indication: Product used for unknown indication
     Dosage: 5 MILLIGRAM DAILY;   SPIRICORT  (PREDNISOLONE) 5 MG 1-0-0-0, SWITCH TO PREDNISONE GALEPHARM  (PREDNI
     Route: 048
     Dates: end: 202208
  6. Salofalk [Concomitant]
     Indication: Product used for unknown indication
     Dosage: 2000 MILLIGRAM DAILY;  500 MG 2-0-2-0
     Route: 048
  7. PANTOZOL [Concomitant]
     Active Substance: PANTOPRAZOLE SODIUM
     Indication: Product used for unknown indication
     Dosage: 80 MILLIGRAM DAILY;  PANTOZOL  (PANTOPRAZOLE) 40 MG 1-0-1-0, CHANGED TO NEXIUM  (ESOMEPRAZOLE) 40 MG
     Route: 048
     Dates: end: 202208
  8. METOPROLOL SUCCINATE [Concomitant]
     Active Substance: METOPROLOL SUCCINATE
     Indication: Product used for unknown indication
     Dosage: 25 MILLIGRAM DAILY;   METOPROLOL MEPHA  (METOPROLOL) 25 MG 1-0-0-0
     Route: 048
  9. CALCIUM CARBONATE\CHOLECALCIFEROL [Concomitant]
     Active Substance: CALCIUM CARBONATE\CHOLECALCIFEROL
     Indication: Product used for unknown indication
     Dosage: 1 DOSAGE FORMS DAILY; 1 DOSAGE FORM = 500 MG / 800 IE,  KALCIPOS -D3 FILMTABL 500MG / 800 IU (CALCIU
     Route: 048
  10. EUTHYROX [Concomitant]
     Active Substance: LEVOTHYROXINE SODIUM
     Indication: Product used for unknown indication
     Dosage: 100 MICROGRAM DAILY;  EUTHYROX  (LEVOTHYROXINE) 100 MCG 1-0-0-0
     Route: 048
     Dates: end: 202208
  11. EUTHYROX [Concomitant]
     Active Substance: LEVOTHYROXINE SODIUM
     Dosage: 150 MICROGRAM DAILY; UNIT DOSE: 150 MCG , FREQUENCY TIME : 1 DAY, STRENGTH : 100 MCG, DURING HOSPITA
     Route: 048
     Dates: start: 202208
  12. CANDESARTAN CILEXETIL [Concomitant]
     Active Substance: CANDESARTAN CILEXETIL
     Indication: Product used for unknown indication
     Dosage: 16 MILLIGRAM DAILY;   16 MG,  1-0-0-0
     Route: 048
  13. ALUCOL FRUCHTAROMA [Concomitant]
     Indication: Product used for unknown indication
     Dosage: 30 ML DAILY;  ALUCOL  (ALUMINIUM, CALCIUM AND MAGNESIUM SALTS)
     Route: 048
     Dates: end: 202208
  14. THIAMINE HYDROCHLORIDE [Concomitant]
     Active Substance: THIAMINE HYDROCHLORIDE
     Indication: Product used for unknown indication
     Dosage: 300 MILLIGRAM DAILY;  , BENERVA  (VITAMIN B1) 300 MG 1-0-0-0
     Route: 048
     Dates: end: 202208
  15. FOLIC ACID [Concomitant]
     Active Substance: FOLIC ACID
     Indication: Product used for unknown indication
     Dosage: 5 MILLIGRAM DAILY;   ACIDUM FOLICUM 5 MG 1-0-0-0
     Route: 048
     Dates: end: 202208
  16. Bioflorin [Concomitant]
     Indication: Product used for unknown indication
     Dosage: 2 DOSAGE FORMS DAILY;   BIOFLORIN  (ENTEROCOCCUS FAECIUM STRAIN CERNELLE 68)
     Route: 048
     Dates: end: 202208

REACTIONS (2)
  - Liver disorder [Recovering/Resolving]
  - Cholestatic liver injury [Recovering/Resolving]

NARRATIVE: CASE EVENT DATE: 20220601
